FAERS Safety Report 26170884 (Version 1)
Quarter: 2025Q4

REPORT INFORMATION
  Report Type: Spontaneous
  Country: CN (occurrence: CN)
  Receive Date: 20251217
  Receipt Date: 20251217
  Transmission Date: 20260118
  Serious: Yes (Hospitalization)
  Sender: PFIZER
  Company Number: CN-MLMSERVICE-20251201-PI733810-00047-1

PATIENT
  Age: 19 Year
  Sex: Male
  Weight: 70 kg

DRUGS (15)
  1. LINEZOLID [Suspect]
     Active Substance: LINEZOLID
     Indication: Tuberculosis
     Dosage: DAY TIME
     Route: 048
     Dates: start: 20230213, end: 202305
  2. LINEZOLID [Suspect]
     Active Substance: LINEZOLID
     Indication: Lymph node tuberculosis
  3. AMIKACIN [Suspect]
     Active Substance: AMIKACIN
     Indication: Tuberculosis
     Dosage: 0.6 G/ (DAYTIME) OF AM (0.2 G/PIECE)
     Route: 030
     Dates: start: 20230213, end: 202305
  4. AMIKACIN [Suspect]
     Active Substance: AMIKACIN
     Indication: Lymph node tuberculosis
  5. BEDAQUILINE [Suspect]
     Active Substance: BEDAQUILINE
     Indication: Tuberculosis
     Dosage: DAY TIME
     Route: 048
     Dates: start: 20230213, end: 20230227
  6. BEDAQUILINE [Suspect]
     Active Substance: BEDAQUILINE
     Indication: Lymph node tuberculosis
     Dosage: TAKEN AS 200 MG/TIME WITH 3 TIMES PER WEEK AFTER 14 DAYS
     Route: 048
     Dates: start: 20230227, end: 202305
  7. CLOFAZIMINE [Suspect]
     Active Substance: CLOFAZIMINE
     Indication: Tuberculosis
     Dosage: DAY ? TIME
     Route: 048
     Dates: start: 20230213, end: 202305
  8. CLOFAZIMINE [Suspect]
     Active Substance: CLOFAZIMINE
     Indication: Lymph node tuberculosis
  9. CYCLOSERINE [Suspect]
     Active Substance: CYCLOSERINE
     Indication: Tuberculosis
     Dosage: FREQ:12 H;250 MG/TIME OF CS CAPSULES WITH 50 MG/TIME OF VITAMIN B6 (TWICE A DAY)
     Route: 048
     Dates: start: 20230213, end: 202305
  10. CYCLOSERINE [Suspect]
     Active Substance: CYCLOSERINE
     Indication: Lymph node tuberculosis
  11. PYRAZINAMIDE [Suspect]
     Active Substance: PYRAZINAMIDE
     Indication: Tuberculosis
     Dosage: FREQ:8 H;
     Route: 048
     Dates: start: 20230213, end: 202305
  12. PYRAZINAMIDE [Suspect]
     Active Substance: PYRAZINAMIDE
     Indication: Lymph node tuberculosis
  13. ETHAMBUTOL [Suspect]
     Active Substance: ETHAMBUTOL HYDROCHLORIDE
     Indication: Tuberculosis
     Dosage: DAY ? TIME
     Route: 048
     Dates: start: 20230213, end: 202305
  14. ETHAMBUTOL [Suspect]
     Active Substance: ETHAMBUTOL HYDROCHLORIDE
     Indication: Lymph node tuberculosis
  15. VITAMIN B6 [Concomitant]
     Active Substance: PYRIDOXINE HYDROCHLORIDE
     Dosage: FREQ:12 H;250 MG/TIME OF CS CAPSULES WITH 50 MG/TIME OF VITAMIN B6 (TWICE A DAY)
     Dates: start: 20230213

REACTIONS (2)
  - Hepatitis fulminant [Recovered/Resolved]
  - Off label use [Unknown]

NARRATIVE: CASE EVENT DATE: 20230213
